FAERS Safety Report 6581438-3 (Version None)
Quarter: 2010Q1

REPORT INFORMATION
  Report Type: 
  Country: None (occurrence: None)
  Receive Date: 20100215
  Receipt Date: 20100206
  Transmission Date: 20100710
  Serious: No
  Sender: FDA-Public Use
  Company Number: A0842663A

PATIENT
  Sex: Female

DRUGS (7)
  1. PROMACTA [Suspect]
     Dates: start: 20090401
  2. CORTICOSTEROIDS [Concomitant]
     Indication: IDIOPATHIC THROMBOCYTOPENIC PURPURA
  3. DANAZOL [Concomitant]
     Indication: IDIOPATHIC THROMBOCYTOPENIC PURPURA
  4. GLYBURIDE [Concomitant]
  5. LOTREL [Concomitant]
  6. CLONIDINE [Concomitant]
  7. ATENOLOL [Concomitant]

REACTIONS (2)
  - BLOOD ALKALINE PHOSPHATASE INCREASED [None]
  - LIVER DISORDER [None]
